FAERS Safety Report 7150723-9 (Version None)
Quarter: 2010Q4

REPORT INFORMATION
  Report Type: 
  Country: None (occurrence: None)
  Receive Date: 20101210
  Receipt Date: 20101201
  Transmission Date: 20110411
  Serious: Yes (Hospitalization, Other)
  Sender: FDA-Public Use
  Company Number: US-ELI_LILLY_AND_COMPANY-US201002003429

PATIENT
  Sex: Male
  Weight: 136.5 kg

DRUGS (14)
  1. BYETTA [Suspect]
     Dosage: UNK, UNKNOWN
     Route: 065
     Dates: start: 20060211
  2. BYETTA [Suspect]
     Dosage: 10 UG, 2/D
     Route: 058
     Dates: start: 20060211, end: 20071101
  3. HUMULIN 50/50 [Concomitant]
     Indication: DIABETES MELLITUS
     Dosage: 40 U, EACH MORNING
     Dates: start: 20000101
  4. HUMULIN MIX [Concomitant]
     Indication: DIABETES MELLITUS
     Dosage: 40 U, EACH EVENING
     Dates: start: 20000101
  5. HUMALOG [Concomitant]
     Indication: DIABETES MELLITUS
     Dates: start: 20000101
  6. LANTUS [Concomitant]
     Indication: DIABETES MELLITUS
     Dosage: UNK, AS NEEDED
  7. PREVACID [Concomitant]
     Indication: GASTROOESOPHAGEAL REFLUX DISEASE
     Dosage: 30 MG, 2/D
  8. TOPROL-XL [Concomitant]
     Dosage: 25 MG, DAILY (1/D)
  9. LIPITOR [Concomitant]
     Dosage: 10 MG, DAILY (1/D)
  10. ENALAPRIL [Concomitant]
     Dosage: 2.5 MG, 2/D
  11. ZETIA [Concomitant]
     Dosage: 10 MG, DAILY (1/D)
  12. IBUPROFEN [Concomitant]
     Dates: start: 20071010
  13. AMOXICILLIN [Concomitant]
     Indication: OROPHARYNGEAL PAIN
     Dates: end: 20071001
  14. MORPHINE [Concomitant]

REACTIONS (3)
  - BLOOD GLUCOSE ABNORMAL [None]
  - OFF LABEL USE [None]
  - PANCREATITIS ACUTE [None]
